FAERS Safety Report 7541532-7 (Version None)
Quarter: 2011Q2

REPORT INFORMATION
  Report Type: 
  Country: None (occurrence: None)
  Receive Date: 20110613
  Receipt Date: 20110603
  Transmission Date: 20111010
  Serious: Yes (Hospitalization)
  Sender: FDA-Public Use
  Company Number: CA-BRISTOL-MYERS SQUIBB COMPANY-15823016

PATIENT
  Age: 66 Year
  Sex: Male
  Weight: 75 kg

DRUGS (3)
  1. CARBOPLATIN [Suspect]
     Indication: HEAD AND NECK CANCER
     Route: 042
     Dates: start: 20110519, end: 20110519
  2. CETUXIMAB [Suspect]
     Indication: HEAD AND NECK CANCER
     Dosage: ON 02-JUN-2011 THIRD AND MOST RECENT INFUSION 465MG
     Dates: start: 20110519
  3. FLUOROURACIL [Suspect]
     Indication: HEAD AND NECK CANCER
     Route: 042
     Dates: start: 20110519, end: 20110519

REACTIONS (1)
  - LARYNGEAL HAEMORRHAGE [None]
